FAERS Safety Report 10794884 (Version 1)
Quarter: 2015Q1

REPORT INFORMATION
  Report Type: Spontaneous
  Country: GR (occurrence: GR)
  Receive Date: 20150213
  Receipt Date: 20150213
  Transmission Date: 20150721
  Serious: Yes (Other)
  Sender: FDA-Public Use
  Company Number: PHHY2015GR013428

PATIENT
  Age: 36 Year
  Sex: Male

DRUGS (2)
  1. DEFEROXAMINE [Suspect]
     Active Substance: DEFEROXAMINE\DEFEROXAMINE MESYLATE
     Indication: PRODUCT USED FOR UNKNOWN INDICATION
     Route: 065
  2. DEFEROXAMINE [Suspect]
     Active Substance: DEFEROXAMINE\DEFEROXAMINE MESYLATE
     Dosage: 50 MG/KG BODY WEIGHT, QD (DAILY)
     Route: 065
     Dates: start: 200610

REACTIONS (9)
  - Deafness [Unknown]
  - Cardiac siderosis [Recovering/Resolving]
  - Hepatic siderosis [Recovering/Resolving]
  - Marrow hyperplasia [Unknown]
  - Injection site mass [Unknown]
  - Febrile neutropenia [Unknown]
  - Granulocyte count decreased [Unknown]
  - Osteopenia [Unknown]
  - Splenomegaly [Unknown]

NARRATIVE: CASE EVENT DATE: 200610
